FAERS Safety Report 6055947-X (Version None)
Quarter: 2009Q1

REPORT INFORMATION
  Report Type: 
  Country: None (occurrence: None)
  Receive Date: 20090128
  Receipt Date: 20090113
  Transmission Date: 20090719
  Serious: Yes (Other)
  Sender: FDA-Public Use
  Company Number: SK-B.I. PHARMACEUTICALS,INC./RIDGEFIELD-2009-DE-00265GD

PATIENT
  Age: 60 Year
  Sex: Female

DRUGS (3)
  1. PRAMIPEXOLE DIHYDROCHLORIDE [Suspect]
     Indication: PARKINSON'S DISEASE
  2. LEVODOPA [Suspect]
     Indication: PARKINSON'S DISEASE
  3. BIPERIDEN HYDROCHLORIDE TAB [Suspect]
     Indication: DYSKINESIA

REACTIONS (8)
  - ANOREXIA [None]
  - CONFUSIONAL STATE [None]
  - DIARRHOEA [None]
  - DRUG INEFFECTIVE [None]
  - DYSKINESIA [None]
  - HYPERTHYROIDISM [None]
  - TREMOR [None]
  - WEIGHT DECREASED [None]
